FAERS Safety Report 7537277-X (Version None)
Quarter: 2011Q2

REPORT INFORMATION
  Report Type: 
  Country: None (occurrence: None)
  Receive Date: 20110609
  Receipt Date: 20110603
  Transmission Date: 20111010
  Serious: Yes (Other)
  Sender: FDA-Public Use
  Company Number: US-PFIZER INC-2009270273

PATIENT
  Sex: Female
  Weight: 122 kg

DRUGS (10)
  1. MEDROXYPROGESTERONE ACETATE [Suspect]
     Indication: HORMONE REPLACEMENT THERAPY
     Dosage: 2.5, UNK
     Route: 048
     Dates: start: 19940101, end: 19940501
  2. IBUPROFEN [Concomitant]
     Indication: ARTHRITIS
     Dosage: UNK
     Dates: start: 20000101, end: 20021201
  3. PREMPRO [Suspect]
     Indication: HORMONE REPLACEMENT THERAPY
     Dosage: 0.625/2.5, UNK
     Route: 048
     Dates: start: 19980201, end: 20020101
  4. GLUCOTROL [Concomitant]
     Indication: DIABETES MELLITUS
     Dosage: UNK
     Dates: start: 20000901, end: 20030301
  5. PROVERA [Suspect]
     Indication: HORMONE REPLACEMENT THERAPY
     Dosage: 2.5, UNK
     Route: 048
     Dates: start: 19940101, end: 19940501
  6. PREMARIN [Suspect]
     Indication: HORMONE REPLACEMENT THERAPY
     Dosage: 0.625, UNK
     Route: 048
     Dates: start: 19940101, end: 19961201
  7. METFORMIN [Concomitant]
     Indication: DIABETES MELLITUS
     Dosage: UNK
     Dates: start: 20000901
  8. HYZAAR [Concomitant]
     Indication: HYPERTENSION
     Dosage: UNK
     Dates: start: 20010101, end: 20030201
  9. DIOVANE [Concomitant]
     Indication: HYPERTENSION
     Dosage: UNK
     Dates: start: 20011001
  10. CYCRIN [Suspect]
     Indication: HORMONE REPLACEMENT THERAPY
     Dosage: 2.5, UNK
     Route: 048
     Dates: start: 19960901, end: 19961201

REACTIONS (1)
  - BREAST CANCER FEMALE [None]
